FAERS Safety Report 4948188-8 (Version None)
Quarter: 2006Q1

REPORT INFORMATION
  Report Type: 
  Country: None (occurrence: None)
  Receive Date: 20060127
  Receipt Date: 20050224
  Transmission Date: 20060701
  Serious: Yes (Death)
  Sender: FDA-Public Use
  Company Number: 05-02-0282

PATIENT
  Age: 47 Year
  Sex: Female
  Weight: 83.9154 kg

DRUGS (4)
  1. CLOZAPINE [Suspect]
     Indication: SCHIZOAFFECTIVE DISORDER
     Dosage: 400MG QD, ORAL
     Route: 048
     Dates: start: 20040216, end: 20050207
  2. EFFEXOR [Concomitant]
  3. ATIVAN [Concomitant]
  4. CLONIDINE [Concomitant]

REACTIONS (1)
  - PRE-EXISTING DISEASE [None]
